FAERS Safety Report 11932391 (Version 5)
Quarter: 2016Q1

REPORT INFORMATION
  Report Type: Report from Study
  Country: CA (occurrence: CA)
  Receive Date: 20160120
  Receipt Date: 20160314
  Transmission Date: 20160526
  Serious: Yes (Hospitalization, Other)
  Sender: FDA-Public Use
  Company Number: PHHY2015CA163356

PATIENT
  Age: 48 Year
  Sex: Female

DRUGS (3)
  1. SANDOSTATIN LAR DEPOT [Suspect]
     Active Substance: OCTREOTIDE ACETATE
     Indication: DESMOID TUMOUR
     Dosage: 30 MG, QMO (EVERY 4 WEEKS)
     Route: 030
     Dates: start: 20151103
  2. SANDOSTATIN [Suspect]
     Active Substance: OCTREOTIDE ACETATE
     Indication: DESMOID TUMOUR
     Dosage: UNK UNK, BID
     Route: 058
     Dates: start: 201510, end: 201511
  3. GLEEVEC [Concomitant]
     Active Substance: IMATINIB MESYLATE
     Indication: PRODUCT USED FOR UNKNOWN INDICATION
     Dosage: UNK
     Route: 048

REACTIONS (18)
  - Peripheral swelling [Unknown]
  - Malaise [Unknown]
  - Tumour compression [Unknown]
  - Product use issue [Unknown]
  - Muscle disorder [Unknown]
  - Dehydration [Unknown]
  - Somnolence [Unknown]
  - Chest pain [Unknown]
  - Tendon disorder [Unknown]
  - Skin striae [Unknown]
  - Eating disorder [Unknown]
  - Asthenia [Unknown]
  - Weight decreased [Unknown]
  - Body temperature decreased [Unknown]
  - Vomiting [Unknown]
  - Malignant neoplasm progression [Unknown]
  - Pain [Unknown]
  - Gait disturbance [Unknown]

NARRATIVE: CASE EVENT DATE: 20160118
